FAERS Safety Report 15248115 (Version 1)
Quarter: 2018Q3

REPORT INFORMATION
  Report Type: Spontaneous
  Country: US (occurrence: US)
  Receive Date: 20180714
  Receipt Date: 20180714
  Transmission Date: 20181010
  Serious: Yes (Other)
  Sender: FDA-Public Use
  Company Number: None

PATIENT
  Age: 24 Year
  Sex: Female
  Weight: 67.5 kg

DRUGS (1)
  1. THE ORDINARY SALICYLIC ACID 2% SOLUTION [Suspect]
     Active Substance: SALICYLIC ACID
     Indication: ACNE
     Route: 061

REACTIONS (5)
  - Application site swelling [None]
  - Eye swelling [None]
  - Application site pain [None]
  - Application site erythema [None]
  - Drug hypersensitivity [None]

NARRATIVE: CASE EVENT DATE: 20180419
